FAERS Safety Report 25858404 (Version 1)
Quarter: 2025Q3

REPORT INFORMATION
  Report Type: Spontaneous
  Country: US (occurrence: US)
  Receive Date: 20250929
  Receipt Date: 20250929
  Transmission Date: 20251020
  Serious: Yes (Other)
  Sender: ALVOGEN
  Company Number: US-ALVOGEN-2025098782

PATIENT
  Sex: Female

DRUGS (2)
  1. TERIPARATIDE [Suspect]
     Active Substance: TERIPARATIDE
     Indication: Osteoporosis
     Dosage: STRENGTH: 250MCG/ML, DAILY ONGOING
     Route: 058
     Dates: start: 202503
  2. DROXIDOPA [Concomitant]
     Active Substance: DROXIDOPA
     Indication: Product used for unknown indication

REACTIONS (1)
  - Parkinson^s disease [Unknown]

NARRATIVE: CASE EVENT DATE: 20250101
